FAERS Safety Report 5258407-9 (Version None)
Quarter: 2007Q1

REPORT INFORMATION
  Report Type: 
  Country: None (occurrence: None)
  Receive Date: 20070306
  Receipt Date: 20070306
  Transmission Date: 20070707
  Serious: No
  Sender: FDA-Public Use
  Company Number: None

PATIENT
  Sex: Female
  Weight: 54.4316 kg

DRUGS (2)
  1. CRESTOR [Suspect]
     Dosage: 5 MG 1X DAILY
     Dates: start: 20060501
  2. VYTORIN [Suspect]
     Dosage: 10/10 1X DAILY
     Dates: start: 20061101

REACTIONS (2)
  - INSOMNIA [None]
  - PALPITATIONS [None]
